FAERS Safety Report 7774597-8 (Version None)
Quarter: 2011Q3

REPORT INFORMATION
  Report Type: 
  Country: None (occurrence: None)
  Receive Date: 20110923
  Receipt Date: 20110916
  Transmission Date: 20111222
  Serious: Yes (Life-Threatening, Hospitalization, Other)
  Sender: FDA-Public Use
  Company Number: JP-PFIZER INC-2011164867

PATIENT
  Age: 52 Year
  Sex: Female
  Weight: 52 kg

DRUGS (8)
  1. CYCLOPHOSPHAMIDE [Suspect]
     Dosage: 500 MG/M2, UNK
     Dates: start: 20110810, end: 20110810
  2. DECADRON [Concomitant]
  3. SENNA-MINT WAF [Concomitant]
  4. EPIRUBICIN HYDROCHLORIDE [Suspect]
     Dosage: 60 MG/M2, UNK
     Dates: start: 20110810, end: 20110810
  5. CYCLOPHOSPHAMIDE [Suspect]
     Indication: BREAST CANCER
     Dosage: 800 MG, (600 MG/M2)
     Dates: start: 20110620, end: 20110620
  6. EPIRUBICIN HYDROCHLORIDE [Suspect]
     Indication: BREAST CANCER
     Dosage: 140 MG (100 MG/M2)
     Route: 042
     Dates: start: 20110620, end: 20110620
  7. MAGMITT [Concomitant]
  8. CEFPODOXIME PROXETIL [Concomitant]

REACTIONS (5)
  - MALAISE [None]
  - NEUTROPENIA [None]
  - WHITE BLOOD CELL COUNT DECREASED [None]
  - DECREASED APPETITE [None]
  - PYREXIA [None]
